FAERS Safety Report 20919041 (Version 6)
Quarter: 2022Q3

REPORT INFORMATION
  Report Type: Spontaneous
  Country: US (occurrence: US)
  Receive Date: 20220606
  Receipt Date: 20220721
  Transmission Date: 20221027
  Serious: No
  Sender: FDA-Public Use
  Company Number: US-PFIZER INC-202200789859

PATIENT
  Age: 87 Year
  Sex: Female

DRUGS (1)
  1. VYNDAMAX [Suspect]
     Active Substance: TAFAMIDIS
     Dosage: 61 MG, 2X/DAY
     Route: 048

REACTIONS (3)
  - Prescribed overdose [Unknown]
  - Nasopharyngitis [Unknown]
  - Malaise [Unknown]
